FAERS Safety Report 5234229-X (Version None)
Quarter: 2007Q1

REPORT INFORMATION
  Report Type: 
  Country: None (occurrence: None)
  Receive Date: 20070209
  Receipt Date: 20070206
  Transmission Date: 20070707
  Serious: Yes (Life-Threatening, Hospitalization)
  Sender: FDA-Public Use
  Company Number: PHBS2007ES02221

PATIENT
  Age: 36 Year
  Sex: Male

DRUGS (2)
  1. TEGRETOL [Suspect]
     Indication: EPILEPSY
     Dosage: UNK, TID
     Route: 048
     Dates: start: 20060815, end: 20060915
  2. PREVENCOR [Suspect]
     Indication: HYPERCHOLESTEROLAEMIA
     Dosage: 20 MG/DAY
     Route: 048
     Dates: start: 20040101

REACTIONS (4)
  - AGRANULOCYTOSIS [None]
  - DRUG INTERACTION [None]
  - NEUTROPHIL COUNT DECREASED [None]
  - OTITIS MEDIA ACUTE [None]
